FAERS Safety Report 10492877 (Version 1)
Quarter: 2014Q4

REPORT INFORMATION
  Report Type: Spontaneous
  Country: US (occurrence: US)
  Receive Date: 20141002
  Receipt Date: 20141002
  Transmission Date: 20150528
  Serious: No
  Sender: FDA-Public Use
  Company Number: US-GLAXOSMITHKLINE-A1076457A

PATIENT
  Age: 56 Year
  Sex: Female

DRUGS (5)
  1. SINGULAIR [Concomitant]
     Active Substance: MONTELUKAST SODIUM
  2. ALLEGRA [Concomitant]
     Active Substance: FEXOFENADINE HYDROCHLORIDE
  3. FLUTICASONE PROPIONATE. [Suspect]
     Active Substance: FLUTICASONE PROPIONATE
     Indication: SINUS DISORDER
     Dosage: 1PUFF TWICE PER DAY
     Route: 045
  4. ADVAIR HFA [Suspect]
     Active Substance: FLUTICASONE PROPIONATE\SALMETEROL XINAFOATE
     Indication: ASTHMA
     Dosage: 1PUFF TWICE PER DAY
     Route: 055
  5. NEXIUM [Concomitant]
     Active Substance: ESOMEPRAZOLE MAGNESIUM

REACTIONS (8)
  - Asthma [Not Recovered/Not Resolved]
  - Tremor [Recovered/Resolved]
  - Dysuria [Not Recovered/Not Resolved]
  - Heart rate increased [Recovered/Resolved]
  - Therapeutic response decreased [Unknown]
  - Drug administration error [Unknown]
  - Renal disorder [Unknown]
  - Insomnia [Unknown]

NARRATIVE: CASE EVENT DATE: 201312
